FAERS Safety Report 25619221 (Version 1)
Quarter: 2025Q3

REPORT INFORMATION
  Report Type: Spontaneous
  Country: EU (occurrence: EU)
  Receive Date: 20250729
  Receipt Date: 20250729
  Transmission Date: 20251021
  Serious: Yes (Hospitalization, Other)
  Sender: Alora Pharma
  Company Number: EU-ACELLA PHARMACEUTICALS, LLC-2025ALO02366

PATIENT
  Age: 64 Year
  Sex: Male

DRUGS (12)
  1. AMIODARONE HYDROCHLORIDE [Suspect]
     Active Substance: AMIODARONE HYDROCHLORIDE
     Indication: Atrial fibrillation
     Route: 042
  2. AMIODARONE HYDROCHLORIDE [Suspect]
     Active Substance: AMIODARONE HYDROCHLORIDE
     Dosage: 200 MG, 2X/DAY
  3. AMIODARONE HYDROCHLORIDE [Suspect]
     Active Substance: AMIODARONE HYDROCHLORIDE
  4. AMIODARONE HYDROCHLORIDE [Suspect]
     Active Substance: AMIODARONE HYDROCHLORIDE
     Dosage: 200 MG, 1X/DAY
  5. ERLOTINIB [Suspect]
     Active Substance: ERLOTINIB
     Indication: Lung neoplasm malignant
     Dosage: 150 MG, 1X/DAY
  6. ERLOTINIB [Suspect]
     Active Substance: ERLOTINIB
     Dosage: 150 MG, 1X/DAY
  7. ERLOTINIB [Suspect]
     Active Substance: ERLOTINIB
     Dosage: 100 MG, 1X/DAY
  8. ALLOPURINOL [Concomitant]
     Active Substance: ALLOPURINOL
  9. ALBUTEROL [Concomitant]
     Active Substance: ALBUTEROL
  10. GLYCOPYRROLATE [Concomitant]
     Active Substance: GLYCOPYRROLATE
  11. INDACATEROL [Concomitant]
     Active Substance: INDACATEROL
  12. CLOPIDOGREL [Concomitant]
     Active Substance: CLOPIDOGREL BISULFATE

REACTIONS (3)
  - Neurotoxicity [Recovered/Resolved]
  - Generalised tonic-clonic seizure [Recovered/Resolved]
  - Drug interaction [Recovered/Resolved]
